FAERS Safety Report 5630889-X (Version None)
Quarter: 2008Q1

REPORT INFORMATION
  Report Type: 
  Country: None (occurrence: None)
  Receive Date: 20080131
  Receipt Date: 20071115
  Transmission Date: 20080703
  Serious: No
  Sender: FDA-Public Use
  Company Number: 163-21880-07101371

PATIENT
  Age: 73 Year
  Sex: Female

DRUGS (7)
  1. REVLIMID [Suspect]
     Indication: MULTIPLE MYELOMA
     Dosage: 15 MG, HS, ORAL ; 25 MG, HS, ORAL
     Route: 048
     Dates: start: 20070822, end: 20070912
  2. REVLIMID [Suspect]
     Indication: MULTIPLE MYELOMA
     Dosage: 15 MG, HS, ORAL ; 25 MG, HS, ORAL
     Route: 048
     Dates: start: 20070919
  3. ZOMETA [Concomitant]
  4. DOXIL [Concomitant]
  5. DECADRON [Concomitant]
  6. CIPRO [Concomitant]
  7. WARFARIN SODIUM [Concomitant]

REACTIONS (5)
  - EYE PAIN [None]
  - HYPOAESTHESIA [None]
  - NEUROPATHY PERIPHERAL [None]
  - SKIN EXFOLIATION [None]
  - STOMATITIS [None]
